FAERS Safety Report 5280382-1 (Version None)
Quarter: 2007Q1

REPORT INFORMATION
  Report Type: 
  Country: None (occurrence: None)
  Receive Date: 20070326
  Receipt Date: 20070326
  Transmission Date: 20070707
  Serious: Yes (Hospitalization)
  Sender: FDA-Public Use
  Company Number: None

PATIENT
  Sex: Male

DRUGS (7)
  1. REVLIMID [Suspect]
     Indication: CHRONIC LYMPHOCYTIC LEUKAEMIA
     Dosage: 10MG DAILY FOR 28 DAYS PO
     Route: 048
     Dates: start: 20070221, end: 20070311
  2. FAMOTIDINE [Concomitant]
  3. ATENOLOL [Concomitant]
  4. PREDNISONE [Concomitant]
  5. COZAAR [Concomitant]
  6. NOVOLIN N [Concomitant]
  7. NOVOLIN R [Concomitant]

REACTIONS (1)
  - HAEMOLYTIC ANAEMIA [None]
